FAERS Safety Report 9749063 (Version 2)
Quarter: 2014Q1

REPORT INFORMATION
  Report Type: Spontaneous
  Country: US (occurrence: US)
  Receive Date: 20131212
  Receipt Date: 20140102
  Transmission Date: 20141002
  Serious: Yes (Other)
  Sender: FDA-Public Use
  Company Number: US-INCYTE CORPORATION-2013IN002294

PATIENT
  Age: 73 Year
  Sex: Male

DRUGS (7)
  1. JAKAFI [Suspect]
     Indication: MYELOFIBROSIS
     Dosage: 20 MG, BID
     Route: 048
     Dates: start: 20130801
  2. HYDREA [Concomitant]
     Dosage: 1 G, QD
     Route: 048
  3. HYDREA [Concomitant]
     Dosage: 500 MG, QD
  4. HYDREA [Concomitant]
     Dosage: 1 G, QD
  5. ASPIRIN [Concomitant]
     Dosage: 81 MG, QD
     Route: 048
  6. NEURONTIN [Concomitant]
     Dosage: 300 MG IN AM;600 MG PM
     Route: 048
  7. SYNTHROID [Concomitant]
     Dosage: 75 ?G, QD
     Route: 048

REACTIONS (11)
  - Blast cell count increased [Unknown]
  - Epistaxis [Recovered/Resolved]
  - Splenomegaly [Recovering/Resolving]
  - Night sweats [Recovering/Resolving]
  - Leukocytosis [None]
  - Abnormal loss of weight [None]
  - Paraesthesia [None]
  - Hypoaesthesia [None]
  - Contusion [None]
  - Acute prerenal failure [Unknown]
  - Blood lactate dehydrogenase increased [None]
